FAERS Safety Report 26074701 (Version 1)
Quarter: 2025Q4

REPORT INFORMATION
  Report Type: Spontaneous
  Country: EU (occurrence: EU)
  Receive Date: 20251121
  Receipt Date: 20251121
  Transmission Date: 20260117
  Serious: Yes (Hospitalization)
  Sender: RANBAXY
  Company Number: EU-AFSSAPS-TO2025000934

PATIENT
  Age: 38 Year
  Sex: Male
  Weight: 82.2 kg

DRUGS (4)
  1. CASPOFUNGIN [Suspect]
     Active Substance: CASPOFUNGIN
     Indication: Fungaemia
     Dosage: 70 MILLIGRAM, DAILY
     Route: 042
     Dates: start: 20250606
  2. PANTOPRAZOLE [Suspect]
     Active Substance: PANTOPRAZOLE
     Indication: Impaired gastric emptying
     Dosage: 40 MILLIGRAM, DAILY
     Route: 048
     Dates: start: 20250606, end: 20250609
  3. AMOXICILLIN SODIUM [Suspect]
     Active Substance: AMOXICILLIN SODIUM
     Indication: Infection
     Dosage: 1 GRAM, DAILY
     Route: 048
     Dates: start: 20250517, end: 20250603
  4. PENICILLIN V [Suspect]
     Active Substance: PENICILLIN V
     Indication: Infection
     Dosage: 2000000 UNK, DAILY
     Route: 048
     Dates: start: 20250516, end: 20250603

REACTIONS (1)
  - Eosinophilia [Not Recovered/Not Resolved]
